FAERS Safety Report 21699723 (Version 2)
Quarter: 2022Q4

REPORT INFORMATION
  Report Type: Spontaneous
  Country: GB (occurrence: GB)
  Receive Date: 20221208
  Receipt Date: 20221224
  Transmission Date: 20230112
  Serious: Yes (Other)
  Sender: FDA-Public Use
  Company Number: GB-009507513-2110GBR003928

PATIENT
  Sex: Male

DRUGS (6)
  1. PEMETREXED [Suspect]
     Active Substance: PEMETREXED
     Indication: Non-small cell lung cancer
     Dosage: 1 DOSAGE FORM, Q3W (EVERY 3 WEEKS)
     Route: 065
  2. PEMETREXED [Suspect]
     Active Substance: PEMETREXED
     Dosage: UNK
     Route: 065
  3. KEYTRUDA [Suspect]
     Active Substance: PEMBROLIZUMAB
     Indication: Non-small cell lung cancer
     Dosage: 1 DOSAGE FORM, Q3W (EVERY 3 WEEKS)
     Route: 065
  4. KEYTRUDA [Suspect]
     Active Substance: PEMBROLIZUMAB
     Dosage: 1 DOSAGE FORM, Q3W
     Route: 065
  5. PLATINUM [Suspect]
     Active Substance: PLATINUM
     Indication: Non-small cell lung cancer
     Dosage: UNK
     Route: 065
  6. PLATINUM [Suspect]
     Active Substance: PLATINUM
     Dosage: UNK
     Route: 065

REACTIONS (2)
  - Pneumonitis [Unknown]
  - Off label use [Unknown]
